FAERS Safety Report 17362734 (Version 1)
Quarter: 2020Q1

REPORT INFORMATION
  Report Type: Spontaneous
  Country: US (occurrence: US)
  Receive Date: 20200203
  Receipt Date: 20200203
  Transmission Date: 20200409
  Serious: No
  Sender: FDA-Public Use
  Company Number: US-ASTRAZENECA-2020SE13007

PATIENT
  Sex: Male

DRUGS (3)
  1. SYNAGIS [Suspect]
     Active Substance: PALIVIZUMAB
     Route: 030
  2. PREDISONE [Concomitant]
     Active Substance: PREDNISONE
  3. SULFAMETHOXALE/TRIMETHOPRIM [Concomitant]

REACTIONS (2)
  - Malaise [Unknown]
  - Cough [Unknown]
